FAERS Safety Report 25510451 (Version 1)
Quarter: 2025Q3

REPORT INFORMATION
  Report Type: Spontaneous
  Country: US (occurrence: US)
  Receive Date: 20250703
  Receipt Date: 20250703
  Transmission Date: 20251021
  Serious: No
  Sender: VERTEX
  Company Number: US-VERTEX PHARMACEUTICALS-2025-010796

PATIENT

DRUGS (2)
  1. JOURNAVX [Suspect]
     Active Substance: SUZETRIGINE
     Indication: Procedural pain
     Route: 048
  2. ROPIVACAINE [Concomitant]
     Active Substance: ROPIVACAINE
     Indication: Surgery

REACTIONS (1)
  - Syncope [Recovered/Resolved]
